FAERS Safety Report 25438791 (Version 1)
Quarter: 2025Q2

REPORT INFORMATION
  Report Type: Spontaneous
  Country: IT (occurrence: IT)
  Receive Date: 20250616
  Receipt Date: 20250616
  Transmission Date: 20250717
  Serious: Yes (Life-Threatening)
  Sender: TAKEDA
  Company Number: None

PATIENT
  Age: 46 Year
  Sex: Male
  Weight: 89 kg

DRUGS (2)
  1. LANSOPRAZOLE [Suspect]
     Active Substance: LANSOPRAZOLE
     Indication: Product used for unknown indication
     Dates: start: 20250531, end: 20250531
  2. KETOPROFEN LYSINE [Concomitant]
     Active Substance: KETOPROFEN LYSINE

REACTIONS (8)
  - Anaphylactic shock [Recovering/Resolving]
  - Loss of consciousness [Recovering/Resolving]
  - Pruritus [Recovering/Resolving]
  - Confusional state [Recovering/Resolving]
  - Oxygen saturation decreased [Not Recovered/Not Resolved]
  - Musculoskeletal stiffness [Recovering/Resolving]
  - Tachycardia [Not Recovered/Not Resolved]
  - Oedema [Recovering/Resolving]

NARRATIVE: CASE EVENT DATE: 20250531
